FAERS Safety Report 6557123-0 (Version None)
Quarter: 2010Q1

REPORT INFORMATION
  Report Type: 
  Country: None (occurrence: None)
  Receive Date: 20100126
  Receipt Date: 20100120
  Transmission Date: 20100710
  Serious: Yes (Hospitalization)
  Sender: FDA-Public Use
  Company Number: USA/USA/10/0009087

PATIENT
  Age: 50 Year
  Sex: Female

DRUGS (10)
  1. LAMOTRIGINE [Suspect]
     Indication: BIPOLAR DISORDER
     Dosage: 25 MG, 1 IN 1 D, PER ORAL
     Route: 048
  2. LEVOTHYROXINE SODIUM [Concomitant]
  3. LITHIUM CARBONATE [Concomitant]
  4. DILTIAZEM ER(DILTIAZEM HYDROCHLORIDE) [Concomitant]
  5. CLONAZEPAM [Concomitant]
  6. ZOLPIDEM TARTRATE [Concomitant]
  7. RISPERIDONE [Concomitant]
  8. OXYCODONE (OXYCODONE)` [Concomitant]
  9. DIPHENHYDRAMINE HCL [Concomitant]
  10. TYLENOL-500 [Concomitant]

REACTIONS (8)
  - ALANINE AMINOTRANSFERASE INCREASED [None]
  - ASPARTATE AMINOTRANSFERASE INCREASED [None]
  - BLOOD ALKALINE PHOSPHATASE INCREASED [None]
  - BLOOD GLUCOSE INCREASED [None]
  - DYSPNOEA [None]
  - GASTROENTERITIS [None]
  - MENINGITIS ASEPTIC [None]
  - URINE LEUKOCYTE ESTERASE POSITIVE [None]
